FAERS Safety Report 4662474-0 (Version None)
Quarter: 2005Q2

REPORT INFORMATION
  Report Type: 
  Country: None (occurrence: None)
  Receive Date: 20050513
  Receipt Date: 20050513
  Transmission Date: 20051028
  Serious: Yes (Hospitalization)
  Sender: FDA-Public Use
  Company Number: None

PATIENT
  Age: 49 Year
  Sex: Male
  Weight: 91.4 kg

DRUGS (4)
  1. PEGINTERFERON ALPHA 2A    180 MCG [Suspect]
     Indication: HEPATITIS
     Dosage: 180MCG    Q FRIDAY   SUBCUTANEO
     Route: 058
     Dates: start: 20041008, end: 20050309
  2. RIBAVIRIN [Suspect]
     Indication: HEPATITIS
     Dosage: 600MG   BID, THEN QD   ORAL
     Route: 048
     Dates: start: 20041008, end: 20050309
  3. VIT C TAB [Concomitant]
  4. VITAMIN E [Concomitant]

REACTIONS (11)
  - AUTOIMMUNE DISORDER [None]
  - CHEILITIS [None]
  - DERMATOMYOSITIS [None]
  - DYSPHAGIA [None]
  - ERYTHEMA [None]
  - GENERALISED ERYTHEMA [None]
  - MUSCLE FATIGUE [None]
  - PAIN [None]
  - PYREXIA [None]
  - SYSTEMIC LUPUS ERYTHEMATOSUS [None]
  - TACHYCARDIA [None]
